FAERS Safety Report 8236880-1 (Version None)
Quarter: 2012Q1

REPORT INFORMATION
  Report Type: 
  Country: None (occurrence: None)
  Receive Date: 20120327
  Receipt Date: 20120319
  Transmission Date: 20120608
  Serious: Yes (Hospitalization, Other)
  Sender: FDA-Public Use
  Company Number: AT-AMGEN-AUTCT2012004099

PATIENT
  Age: 59 Year
  Sex: Male
  Weight: 60 kg

DRUGS (11)
  1. ESCITALOPRAM [Concomitant]
     Dosage: 10 MG, QD
     Route: 048
     Dates: start: 20110927
  2. MYFORTIC [Concomitant]
     Dosage: 180 MG, QD
     Route: 048
     Dates: start: 20110505
  3. SEROQUEL [Concomitant]
     Dosage: 300 MG, QD
     Route: 048
     Dates: start: 20110505
  4. CANDESARTAN CILEXETIL [Concomitant]
     Dosage: 16 MG, QD
     Route: 048
     Dates: start: 20110824
  5. ZANTAC [Concomitant]
     Dosage: 300 MG, UNK
     Route: 048
     Dates: start: 20110505
  6. CINACALCET HYDROCHLORIDE [Suspect]
     Indication: HYPERPARATHYROIDISM SECONDARY
     Dosage: UNK, QD
     Route: 048
     Dates: start: 20111025
  7. TACROLIMUS [Concomitant]
     Dosage: 4 MG, QD
     Route: 048
     Dates: start: 20110505
  8. PREDNISOLONE [Concomitant]
     Dosage: 5 MG, QD
     Route: 048
     Dates: start: 20110505
  9. VIREAD [Concomitant]
     Dosage: 245 MG, QD
     Route: 048
     Dates: start: 20110505
  10. LERCANIDIPINE [Concomitant]
     Dosage: 10 MG, QD
     Route: 048
     Dates: start: 20110505
  11. CARVEDILOL [Concomitant]
     Dosage: 300 MG, QD
     Route: 048
     Dates: start: 20110505

REACTIONS (3)
  - WEIGHT DECREASED [None]
  - NAUSEA [None]
  - LUNG INFILTRATION [None]
